FAERS Safety Report 9648972 (Version 1)
Quarter: 2013Q4

REPORT INFORMATION
  Report Type: Spontaneous
  Country: US (occurrence: None)
  Receive Date: 20131018
  Receipt Date: 20131018
  Transmission Date: 20140711
  Serious: No
  Sender: FDA-Public Use
  Company Number: AEGR000082

PATIENT
  Age: 72 Year
  Sex: Female
  Weight: 65.8 kg

DRUGS (11)
  1. JUXTAPID [Suspect]
     Indication: TYPE IIA HYPERLIPIDAEMIA
     Route: 048
     Dates: start: 20130530, end: 20130710
  2. ATENOLOL (ATENOLOL) [Concomitant]
  3. NEXIUM (ESOMEPRAZOLE MAGNESIUM) [Concomitant]
  4. ESTRACE (ESTRADIOL) [Concomitant]
  5. TRIAVIL (AMITRIPTYLINE HYDROCHLORIDE, PERPHENAZINE) [Concomitant]
  6. ALEVE (NAPROXEN SODIUM) [Concomitant]
  7. LIVALO (PITAVASTATIN CALCIUM) [Concomitant]
  8. SINGULAIR [Concomitant]
  9. RESTORIL (TEMAZEPAM) [Concomitant]
  10. FLEXERIL (CYCLOBENZAPRINE HYDROCHLORIDE) [Concomitant]
  11. FOLIC ACID (FOLIC ACID) [Concomitant]

REACTIONS (2)
  - Arthralgia [None]
  - Myalgia [None]
